FAERS Safety Report 5008128-2 (Version None)
Quarter: 2006Q1

REPORT INFORMATION
  Report Type: 
  Country: None (occurrence: None)
  Receive Date: 20060330
  Receipt Date: 20051221
  Transmission Date: 20060701
  Serious: No
  Sender: FDA-Public Use
  Company Number: TPA2005A01711

PATIENT
  Age: 81 Year
  Sex: Female
  Weight: 68.0396 kg

DRUGS (2)
  1. ACTOPLUS MET [Suspect]
     Indication: DIABETES MELLITUS NON-INSULIN-DEPENDENT
     Dosage: 15/850 MG, 1 IN 1 D, PER ORAL
     Route: 048
     Dates: start: 20051220, end: 20051221
  2. HUMALOG MIX 75/25 [Suspect]
     Indication: DIABETES MELLITUS
     Dosage: SLIDING SCALE, DAILY, INJECTION
     Dates: start: 20000101

REACTIONS (1)
  - BLOOD GLUCOSE DECREASED [None]
